FAERS Safety Report 6435816-3 (Version None)
Quarter: 2009Q4

REPORT INFORMATION
  Report Type: 
  Country: None (occurrence: None)
  Receive Date: 20091110
  Receipt Date: 20091110
  Transmission Date: 20100525
  Serious: Yes (Hospitalization)
  Sender: FDA-Public Use
  Company Number: None

PATIENT
  Age: 16 Year
  Sex: Female

DRUGS (2)
  1. PHENERGAN HCL [Suspect]
     Dosage: 25 MG ONCE IV PIGGYBACK
     Route: 042
     Dates: start: 20091022, end: 20091022
  2. REGLAN [Suspect]

REACTIONS (4)
  - GASTROENTERITIS [None]
  - MUSCLE SPASMS [None]
  - TONIC CLONIC MOVEMENTS [None]
  - TREMOR [None]
